FAERS Safety Report 6671513-7 (Version None)
Quarter: 2010Q2

REPORT INFORMATION
  Report Type: 
  Country: None (occurrence: None)
  Receive Date: 20100407
  Receipt Date: 20100329
  Transmission Date: 20101027
  Serious: Yes (Death)
  Sender: FDA-Public Use
  Company Number: GXKR2010GB03131

PATIENT
  Age: 56 Year
  Sex: Male
  Weight: 82.8 kg

DRUGS (4)
  1. RISPERIDONE [Suspect]
     Indication: PSYCHOTIC DISORDER
     Dosage: 3 MG, BID
     Route: 048
     Dates: start: 20080417
  2. VENLAFAXINE [Suspect]
     Indication: PSYCHOTIC DISORDER
     Dosage: 75 MG, QD
     Route: 048
     Dates: start: 20090108
  3. PROCYCLIDINE HYDROCHLORIDE [Concomitant]
     Route: 065
  4. PROPRANOLOL [Concomitant]
     Route: 065

REACTIONS (2)
  - CARDIOTOXICITY [None]
  - MYOCARDIAL ISCHAEMIA [None]
